FAERS Safety Report 14521984 (Version 1)
Quarter: 2018Q1

REPORT INFORMATION
  Report Type: Spontaneous
  Country: US (occurrence: US)
  Receive Date: 20180212
  Receipt Date: 20180212
  Transmission Date: 20180509
  Serious: Yes (Death, Life-Threatening, Hospitalization, Disabling, Other)
  Sender: FDA-Public Use
  Company Number: US-MYLANLABS-2018M1011153

PATIENT
  Age: 74 Year
  Sex: Female

DRUGS (14)
  1. PREDNISONE. [Suspect]
     Active Substance: PREDNISONE
     Dosage: 30MG/DAY
     Route: 065
  2. PREDNISONE. [Suspect]
     Active Substance: PREDNISONE
     Dosage: 8MG/DAY
     Route: 065
  3. PREDNISONE. [Suspect]
     Active Substance: PREDNISONE
     Dosage: 3MG/DAY
     Route: 065
  4. PREDNISONE. [Suspect]
     Active Substance: PREDNISONE
     Dosage: 25MG/DAY
     Route: 065
  5. PREDNISONE. [Suspect]
     Active Substance: PREDNISONE
     Dosage: 55MG/DAY
     Route: 065
  6. PREDNISONE. [Suspect]
     Active Substance: PREDNISONE
     Dosage: 15MG/DAY
     Route: 065
  7. PREDNISONE. [Suspect]
     Active Substance: PREDNISONE
     Dosage: 1MG/DAY
     Route: 065
  8. PREDNISONE. [Suspect]
     Active Substance: PREDNISONE
     Dosage: 10MG/DAY
     Route: 065
  9. PREDNISONE. [Suspect]
     Active Substance: PREDNISONE
     Dosage: 60MG/DAY
     Route: 065
  10. PREDNISONE. [Suspect]
     Active Substance: PREDNISONE
     Dosage: 20MG/DAY
     Route: 065
  11. PREDNISONE. [Suspect]
     Active Substance: PREDNISONE
     Dosage: 7MG/DAY
     Route: 065
  12. PREDNISONE. [Suspect]
     Active Substance: PREDNISONE
     Dosage: 5MG/DAY
     Route: 065
  13. PREDNISONE. [Suspect]
     Active Substance: PREDNISONE
     Indication: TEMPORAL ARTERITIS
     Dosage: 80MG/DAY
     Route: 065
  14. PREDNISONE. [Suspect]
     Active Substance: PREDNISONE
     Dosage: 40MG/DAY
     Route: 065

REACTIONS (30)
  - Osteoporosis [Unknown]
  - Balance disorder [Unknown]
  - Sepsis [Unknown]
  - Disorientation [Unknown]
  - Adenocarcinoma of colon [Fatal]
  - Pneumonia [Unknown]
  - Cushingoid [Unknown]
  - Confusional state [Unknown]
  - Septic shock [Unknown]
  - Aortic stenosis [Unknown]
  - Gait disturbance [Unknown]
  - Oedema peripheral [Unknown]
  - Osteopenia [Unknown]
  - Asthenia [Unknown]
  - Urinary tract infection [Unknown]
  - Gastroenteritis viral [Unknown]
  - Lipohypertrophy [Unknown]
  - Suicidal ideation [Unknown]
  - Acidosis [Unknown]
  - Hypotension [Unknown]
  - Soft tissue sarcoma [Fatal]
  - Pain in extremity [Unknown]
  - Chronic obstructive pulmonary disease [Unknown]
  - Fatigue [Unknown]
  - Depression [Unknown]
  - Aggression [Unknown]
  - Anger [Unknown]
  - Fistula [Unknown]
  - Lung adenocarcinoma [Recovered/Resolved]
  - Memory impairment [Unknown]
